FAERS Safety Report 8609110 (Version 4)
Quarter: 2012Q4

REPORT INFORMATION
  Report Type: 
  Country: FR (occurrence: FR)
  Receive Date: 20120611
  Receipt Date: 20121009
  Transmission Date: 20130627
  Serious: Yes (Hospitalization)
  Sender: FDA-Public Use
  Company Number: PHHY2012FR047614

PATIENT
  Age: 13 Year
  Sex: Female
  Weight: 32.5 kg

DRUGS (7)
  1. CORTANCYL [Concomitant]
     Indication: JUVENILE ARTHRITIS
     Dosage: 6 mg, QD
     Route: 048
     Dates: start: 20120427
  2. NAPROXEN [Concomitant]
     Indication: JUVENILE ARTHRITIS
     Dosage: 250 mg, BID
     Route: 048
     Dates: start: 20120427, end: 20120523
  3. METHOTREXATE [Concomitant]
     Indication: JUVENILE ARTHRITIS
     Dosage: 10 mg, once a week
     Route: 048
  4. PARACETAMOL [Concomitant]
     Indication: PAIN
     Dosage: 500 mg, TID
     Route: 048
     Dates: start: 201104, end: 20120523
  5. UNSPECIFIED GROWTH HORMONES [Concomitant]
     Indication: GROWTH RETARDATION
     Dosage: 1 DF, UNK
     Dates: start: 201105
  6. ACZ885 [Suspect]
     Indication: JUVENILE ARTHRITIS
     Dosage: 150 mg, every 4 weeks
     Route: 058
     Dates: start: 200911
  7. PREDNISONE [Concomitant]
     Indication: JUVENILE ARTHRITIS
     Dosage: 4 mg, day

REACTIONS (11)
  - Autoimmune hepatitis [Recovered/Resolved]
  - Jaundice [Recovering/Resolving]
  - Cholestasis [Recovering/Resolving]
  - Hepatocellular injury [Recovering/Resolving]
  - Blood bilirubin increased [Recovering/Resolving]
  - Prothrombin level decreased [Recovering/Resolving]
  - Transaminases increased [Recovering/Resolving]
  - Ocular icterus [Recovering/Resolving]
  - Cholangitis [Recovering/Resolving]
  - Necrosis [Recovering/Resolving]
  - Growth retardation [Unknown]
